FAERS Safety Report 11786340 (Version 2)
Quarter: 2016Q1

REPORT INFORMATION
  Report Type: Report from Study
  Country: US (occurrence: US)
  Receive Date: 20151130
  Receipt Date: 20160118
  Transmission Date: 20160525
  Serious: Yes (Other)
  Sender: FDA-Public Use
  Company Number: US-009507513-1511USA015260

PATIENT

DRUGS (2)
  1. TALAZOPARIB [Suspect]
     Active Substance: TALAZOPARIB
     Indication: NEOPLASM MALIGNANT
     Dosage: }OR=0.5 MG, QD
     Route: 048
  2. TEMODAR [Suspect]
     Active Substance: TEMOZOLOMIDE
     Indication: NEOPLASM MALIGNANT
     Dosage: }OR=25 MG/M2, DAYS 1-5, EVERY 28 DAYS
     Route: 048

REACTIONS (1)
  - Neutropenia [Unknown]
